FAERS Safety Report 19212973 (Version 7)
Quarter: 2022Q1

REPORT INFORMATION
  Report Type: Spontaneous
  Country: US (occurrence: US)
  Receive Date: 20210504
  Receipt Date: 20211223
  Transmission Date: 20220424
  Serious: No
  Sender: FDA-Public Use
  Company Number: US-VERTEX PHARMACEUTICALS-2021-003509

PATIENT
  Age: 35 Year
  Sex: Female
  Weight: 57 kg

DRUGS (30)
  1. TRIKAFTA [Suspect]
     Active Substance: ELEXACAFTOR\IVACAFTOR\TEZACAFTOR
     Indication: Cystic fibrosis
     Dosage: 2 ORANGE TABS (100 MG ELEXA/ 50 MG TEZA/ 75 MG IVA) AM; 1 BLUE TAB (150MG IVA) PM
     Route: 048
     Dates: start: 20210205, end: 2021
  2. TRIKAFTA [Suspect]
     Active Substance: ELEXACAFTOR\IVACAFTOR\TEZACAFTOR
     Dosage: 1 ORANGE TABS (100 MG ELEXA/ 50 MG TEZA/ 75 MG IVA) AM; 1/2 BLUE TAB (150MG IVA) PM
     Route: 048
     Dates: start: 2021
  3. DUPILUMAB [Suspect]
     Active Substance: DUPILUMAB
     Indication: Asthma
     Dosage: 200 MG
     Route: 058
  4. DUPIXENT [Concomitant]
     Active Substance: DUPILUMAB
  5. PULMOZYME [Concomitant]
     Active Substance: DORNASE ALFA
  6. TOBI [Concomitant]
     Active Substance: TOBRAMYCIN
  7. CAYSTON [Concomitant]
     Active Substance: AZTREONAM
  8. ADVAIR HFA [Concomitant]
     Active Substance: FLUTICASONE PROPIONATE\SALMETEROL XINAFOATE
  9. ALEVE [Concomitant]
     Active Substance: NAPROXEN SODIUM
  10. ALLEGRA ALLERGY [Concomitant]
     Active Substance: FEXOFENADINE HYDROCHLORIDE
  11. AZITHROMYCIN [Concomitant]
     Active Substance: AZITHROMYCIN
     Dosage: 500 UNK
  12. CALCIUM CARBONATE [Concomitant]
     Active Substance: CALCIUM CARBONATE
  13. CEFUROXIME [Concomitant]
     Active Substance: CEFUROXIME
  14. CHEWABLE IRON [Concomitant]
  15. CREON [Concomitant]
     Active Substance: PANCRELIPASE AMYLASE\PANCRELIPASE LIPASE\PANCRELIPASE PROTEASE
  16. DAILY-VITE [Concomitant]
  17. DOXYCYCLINE [Concomitant]
     Active Substance: DOXYCYCLINE
  18. FLOVENT [Concomitant]
     Active Substance: FLUTICASONE PROPIONATE
  19. LEVALBUTEROL [Concomitant]
     Active Substance: LEVALBUTEROL
  20. MAGNESIUM [Concomitant]
     Active Substance: MAGNESIUM
  21. MEROPENEM [Concomitant]
     Active Substance: MEROPENEM
  22. NAC [DICLOFENAC SODIUM] [Concomitant]
  23. PEPCID [Concomitant]
     Active Substance: FAMOTIDINE
  24. QNASL [Concomitant]
     Active Substance: BECLOMETHASONE DIPROPIONATE
  25. SUMATRIPTAN SUCCINATE [Concomitant]
     Active Substance: SUMATRIPTAN SUCCINATE
  26. TOBRAMYCIN [Concomitant]
     Active Substance: TOBRAMYCIN
  27. VENLAFAXINE [Concomitant]
     Active Substance: VENLAFAXINE HYDROCHLORIDE
  28. VITAMIN B COMPLEX [Concomitant]
     Active Substance: CYANOCOBALAMIN\DEXPANTHENOL\NIACINAMIDE\PYRIDOXINE HYDROCHLORIDE\RIBOFLAVIN 5^-PHOSPHATE SODIUM\THIA
  29. VITAMIN C [Concomitant]
     Active Substance: ASCORBIC ACID
     Dosage: 1000 MG
  30. VITAMIN D3 [Concomitant]
     Active Substance: CHOLECALCIFEROL

REACTIONS (6)
  - Feeling abnormal [Recovered/Resolved]
  - Throat tightness [Unknown]
  - Aphonia [Recovered/Resolved]
  - Dysphagia [Unknown]
  - Gastrooesophageal reflux disease [Unknown]
  - Larynx irritation [Unknown]

NARRATIVE: CASE EVENT DATE: 20210201
